FAERS Safety Report 8071092-6 (Version None)
Quarter: 2012Q1

REPORT INFORMATION
  Report Type: 
  Country: None (occurrence: None)
  Receive Date: 20120125
  Receipt Date: 20120119
  Transmission Date: 20120608
  Serious: Yes (Hospitalization)
  Sender: FDA-Public Use
  Company Number: IN-PFIZER INC-2011284983

PATIENT
  Age: 49 Year
  Sex: Male

DRUGS (2)
  1. SUTENT [Suspect]
     Indication: METASTATIC RENAL CELL CARCINOMA
     Dosage: 50 MG, 1X/DAY
     Route: 048
     Dates: start: 20111015
  2. SUTENT [Suspect]
     Dosage: 37.5 MG, 1X/DAY
     Route: 048
     Dates: start: 20111106, end: 20111201

REACTIONS (10)
  - DIARRHOEA [None]
  - HAEMOPTYSIS [None]
  - EPISTAXIS [None]
  - URINARY TRACT OBSTRUCTION [None]
  - MOUTH ULCERATION [None]
  - INTESTINAL OBSTRUCTION [None]
  - DYSPEPSIA [None]
  - HAEMATOCHEZIA [None]
  - HAEMOGLOBIN DECREASED [None]
  - ASCITES [None]
